FAERS Safety Report 24441464 (Version 1)
Quarter: 2024Q4

REPORT INFORMATION
  Report Type: Spontaneous
  Country: US (occurrence: US)
  Receive Date: 20241016
  Receipt Date: 20241016
  Transmission Date: 20250115
  Serious: No
  Sender: SANDOZ
  Company Number: US-002147023-NVSC2023US232037

PATIENT
  Age: 59 Year
  Sex: Female
  Weight: 77.2 kg

DRUGS (3)
  1. COMBIPATCH [Suspect]
     Active Substance: ESTRADIOL\NORETHINDRONE ACETATE
     Indication: Menopause
     Dosage: UNK, Q2W, (0.05/0.14 MG), (MONDAYS AND THURSDAYS)
     Route: 062
  2. COMBIPATCH [Suspect]
     Active Substance: ESTRADIOL\NORETHINDRONE ACETATE
     Indication: Blood oestrogen
  3. COMBIPATCH [Suspect]
     Active Substance: ESTRADIOL\NORETHINDRONE ACETATE
     Indication: Progesterone

REACTIONS (3)
  - Headache [Recovered/Resolved]
  - Nervousness [Recovered/Resolved]
  - Off label use [Not Recovered/Not Resolved]
